FAERS Safety Report 5954429-0 (Version None)
Quarter: 2008Q4

REPORT INFORMATION
  Report Type: 
  Country: None (occurrence: None)
  Receive Date: 20081117
  Receipt Date: 20081104
  Transmission Date: 20090506
  Serious: No
  Sender: FDA-Public Use
  Company Number: GB-PFIZER INC-2008063314

PATIENT
  Age: 41 Year
  Sex: Male

DRUGS (2)
  1. CHAMPIX [Suspect]
     Route: 048
     Dates: start: 20080414
  2. PENICILLIN V POTASSIUM [Concomitant]

REACTIONS (1)
  - NO ADVERSE EVENT [None]
